FAERS Safety Report 4295060-5 (Version None)
Quarter: 2004Q1

REPORT INFORMATION
  Report Type: 
  Country: None (occurrence: None)
  Receive Date: 20040211
  Receipt Date: 20040203
  Transmission Date: 20041129
  Serious: Yes (Other)
  Sender: FDA-Public Use
  Company Number: 2004197851JP

PATIENT
  Age: 22 Year
  Sex: Male

DRUGS (1)
  1. TROBICIN [Suspect]
     Indication: GONORRHOEA
     Dosage: IV
     Route: 042

REACTIONS (4)
  - APHONIA [None]
  - BLOOD PRESSURE IMMEASURABLE [None]
  - FEELING ABNORMAL [None]
  - SHOCK [None]
